FAERS Safety Report 11459521 (Version 1)
Quarter: 2015Q3

REPORT INFORMATION
  Report Type: Spontaneous
  Country: US (occurrence: US)
  Receive Date: 20150904
  Receipt Date: 20150904
  Transmission Date: 20151125
  Serious: No
  Sender: FDA-Public Use
  Company Number: US-TARO-2014TAR00362

PATIENT
  Age: 55 Year
  Sex: Female
  Weight: 56.69 kg

DRUGS (6)
  1. DILTIAZEM [Concomitant]
     Active Substance: DILTIAZEM
  2. WARFARIN SODIUM TABLETS USP 10MG [Suspect]
     Active Substance: WARFARIN SODIUM
     Dosage: 15 MG, 3X/WEEK
     Route: 048
     Dates: start: 1996, end: 2014
  3. MULTI-VITAMIN [Concomitant]
     Active Substance: .ALPHA.-TOCOPHEROL ACETATE, DL-\ASCORBIC ACID\CYANOCOBALAMIN\FLUORIDE ION\FOLIC ACID\NIACIN\PYRIDOXINE\RIBOFLAVIN\THIAMINE\VITAMIN A\VITAMIN D
  4. WARFARIN SODIUM TABLETS USP 10MG [Suspect]
     Active Substance: WARFARIN SODIUM
     Indication: AORTIC VALVE REPLACEMENT
     Dosage: 10 MG, 4X/WEEK
     Route: 048
     Dates: start: 1996, end: 2014
  5. BABY ASPIRIN [Concomitant]
     Active Substance: ASPIRIN
  6. TYLENOL [Concomitant]
     Active Substance: ACETAMINOPHEN
     Dosage: UNK, AS NEEDED

REACTIONS (1)
  - International normalised ratio decreased [Recovered/Resolved]

NARRATIVE: CASE EVENT DATE: 201408
